FAERS Safety Report 4401454-7 (Version None)
Quarter: 2004Q3

REPORT INFORMATION
  Report Type: 
  Country: None (occurrence: None)
  Receive Date: 20040907
  Receipt Date: 20040511
  Transmission Date: 20050211
  Serious: No
  Sender: FDA-Public Use
  Company Number: US-BRISTOL-MYERS SQUIBB COMPANY-12584199

PATIENT
  Age: 59 Year
  Sex: Female
  Weight: 159 kg

DRUGS (4)
  1. COUMADIN [Suspect]
     Indication: PULMONARY EMBOLISM
     Dosage: DOSE VALUE:  4 MG 4 DAYS A WEEK, ALTERNATING WITH 5 MG THREE DAYS A WEEK.
     Route: 048
  2. COZAAR [Concomitant]
     Dosage: DURATION: PAST FEW YEARS
  3. XANAX [Concomitant]
     Dosage: DURATION: PAST FEW YEARS
  4. SEROQUEL [Concomitant]
     Dosage: DURATION: PAST FEW YEARS

REACTIONS (1)
  - CONTUSION [None]
